FAERS Safety Report 4481327-4 (Version None)
Quarter: 2004Q4

REPORT INFORMATION
  Report Type: 
  Country: None (occurrence: None)
  Receive Date: 20041021
  Receipt Date: 20040422
  Transmission Date: 20050328
  Serious: Yes (Other)
  Sender: FDA-Public Use
  Company Number: US-GLAXOSMITHKLINE-A0508068A

PATIENT
  Age: 51 Year
  Sex: Female

DRUGS (4)
  1. AVANDIA [Suspect]
     Indication: DIABETES MELLITUS NON-INSULIN-DEPENDENT
     Route: 048
     Dates: start: 20030409
  2. LOVASTATIN [Concomitant]
  3. ADALAT [Concomitant]
  4. GLUCOPHAGE [Concomitant]
     Dosage: 500MG THREE TIMES PER DAY
     Route: 065

REACTIONS (4)
  - ANGIONEUROTIC OEDEMA [None]
  - DRUG INEFFECTIVE [None]
  - FOOD ALLERGY [None]
  - URTICARIA [None]
